FAERS Safety Report 11163860 (Version 1)
Quarter: 2015Q2

REPORT INFORMATION
  Report Type: Spontaneous
  Country: JP (occurrence: JP)
  Receive Date: 20150604
  Receipt Date: 20150604
  Transmission Date: 20150821
  Serious: Yes (Other)
  Sender: FDA-Public Use
  Company Number: PHHY2015JP065732

PATIENT
  Age: 56 Year
  Sex: Female

DRUGS (3)
  1. SIMEPREVIR [Suspect]
     Active Substance: SIMEPREVIR
     Indication: ANTIVIRAL TREATMENT
     Route: 065
  2. RIBAVIRIN. [Suspect]
     Active Substance: RIBAVIRIN
     Indication: ANTIVIRAL TREATMENT
     Route: 065
  3. PEGYLATED INTERFERON ALFA-2A [Suspect]
     Active Substance: PEGINTERFERON ALFA-2A
     Indication: ANTIVIRAL TREATMENT
     Route: 065

REACTIONS (3)
  - Drug ineffective [Unknown]
  - Hepatic function abnormal [Recovered/Resolved]
  - Transplant rejection [Recovered/Resolved]
